FAERS Safety Report 6511544-0 (Version None)
Quarter: 2009Q4

REPORT INFORMATION
  Report Type: 
  Country: None (occurrence: None)
  Receive Date: 20091222
  Receipt Date: 20090420
  Transmission Date: 20100525
  Serious: No
  Sender: FDA-Public Use
  Company Number: US-ASTRAZENECA-2009UW09803

PATIENT
  Sex: Male
  Weight: 72.6 kg

DRUGS (6)
  1. CRESTOR [Suspect]
     Route: 048
     Dates: start: 20060101
  2. NEXIUM [Concomitant]
  3. TRICOR [Concomitant]
  4. DIABETA [Concomitant]
  5. DIOVAN [Concomitant]
  6. LITREL [Concomitant]

REACTIONS (1)
  - HIGH DENSITY LIPOPROTEIN DECREASED [None]
